FAERS Safety Report 5399564-3 (Version None)
Quarter: 2007Q3

REPORT INFORMATION
  Report Type: 
  Country: None (occurrence: None)
  Receive Date: 20070727
  Receipt Date: 20070718
  Transmission Date: 20080115
  Serious: Yes (Congenital Anomaly)
  Sender: FDA-Public Use
  Company Number: FR-ABBOTT-07P-056-0369251-00

PATIENT
  Sex: Male
  Weight: 1.94 kg

DRUGS (1)
  1. DEPAKENE [Suspect]
     Indication: DRUG EXPOSURE DURING PREGNANCY
     Route: 064

REACTIONS (8)
  - ABNORMAL BEHAVIOUR [None]
  - ASPERGER'S DISORDER [None]
  - CONGENITAL HAIR DISORDER [None]
  - DISTURBANCE IN ATTENTION [None]
  - DYSMORPHISM [None]
  - EAR MALFORMATION [None]
  - INTELLIGENCE TEST ABNORMAL [None]
  - STEREOTYPY [None]
